FAERS Safety Report 9450898 (Version 3)
Quarter: 2014Q2

REPORT INFORMATION
  Report Type: Spontaneous
  Country: JP (occurrence: JP)
  Receive Date: 20130809
  Receipt Date: 20140519
  Transmission Date: 20141212
  Serious: Yes (Life-Threatening, Hospitalization)
  Sender: FDA-Public Use
  Company Number: JP-SUCAMPO PHARMA AMERICAS, INC-SPI201300565

PATIENT
  Age: 80 Year
  Sex: Female
  Weight: 38 kg

DRUGS (7)
  1. AMITIZA [Suspect]
     Indication: CONSTIPATION
     Dosage: 24 MCG, QD
     Route: 048
     Dates: start: 20130725, end: 20130728
  2. RIVOTRIL [Concomitant]
     Indication: AUTONOMIC SEIZURE
     Dosage: 0.5 MG, UNK
     Route: 048
     Dates: start: 20130626, end: 20130728
  3. POSTERISAN [Suspect]
     Indication: IRRITABILITY
     Dosage: UNK
     Route: 061
     Dates: start: 20130704, end: 20130728
  4. MAGMITT [Concomitant]
     Indication: CONSTIPATION
     Dosage: 250 MG, TID
     Route: 048
     Dates: start: 20130718, end: 20130728
  5. LENDORMIN [Concomitant]
     Indication: INSOMNIA
     Dosage: 0.25 MG, QD
     Route: 048
     Dates: start: 20130618, end: 20130728
  6. THIATON [Concomitant]
     Indication: ABDOMINAL PAIN
     Dosage: 5 MG, TID
     Route: 048
     Dates: start: 20130726, end: 20130728
  7. COREMINAL [Concomitant]
     Indication: IRRITABLE BOWEL SYNDROME
     Dosage: 4 MG, TID
     Route: 048
     Dates: start: 20130726, end: 20130728

REACTIONS (2)
  - Gastric perforation [Recovering/Resolving]
  - Abdominal pain upper [Recovering/Resolving]
